FAERS Safety Report 11706252 (Version 1)
Quarter: 2015Q4

REPORT INFORMATION
  Report Type: Spontaneous
  Country: US (occurrence: US)
  Receive Date: 20151104
  Receipt Date: 20151104
  Transmission Date: 20160304
  Serious: No
  Sender: FDA-Public Use
  Company Number: US-ELI_LILLY_AND_COMPANY-US201011007293

PATIENT
  Age: 66 Year
  Sex: Female

DRUGS (1)
  1. FORTEO [Suspect]
     Active Substance: TERIPARATIDE
     Dates: start: 20101124, end: 20101124

REACTIONS (9)
  - Palpitations [Unknown]
  - Vitamin D decreased [Unknown]
  - Malaise [Unknown]
  - Blood potassium decreased [Unknown]
  - Dizziness [Not Recovered/Not Resolved]
  - Chills [Unknown]
  - Asthenia [Unknown]
  - Nausea [Unknown]
  - Cardiac discomfort [Unknown]

NARRATIVE: CASE EVENT DATE: 20101125
